FAERS Safety Report 9430178 (Version 1)
Quarter: 2013Q3

REPORT INFORMATION
  Report Type: Spontaneous
  Country: US (occurrence: US)
  Receive Date: 20130730
  Receipt Date: 20130730
  Transmission Date: 20140515
  Serious: No
  Sender: FDA-Public Use
  Company Number: US-PFIZER INC-2013219037

PATIENT
  Age: 61 Year
  Sex: Male

DRUGS (4)
  1. ALPRAZOLAM [Suspect]
     Dosage: UNK
  2. MORPHINE SULFATE [Suspect]
     Dosage: UNK
  3. OXYCONTIN [Suspect]
     Dosage: UNK
  4. TEMAZEPAM [Suspect]
     Dosage: UNK

REACTIONS (1)
  - Drug abuse [Unknown]
